FAERS Safety Report 5927459-2 (Version None)
Quarter: 2008Q4

REPORT INFORMATION
  Report Type: 
  Country: None (occurrence: None)
  Receive Date: 20081022
  Receipt Date: 20081022
  Transmission Date: 20090506
  Serious: Yes (Hospitalization)
  Sender: FDA-Public Use
  Company Number: None

PATIENT
  Age: 62 Year
  Sex: Female
  Weight: 104.3273 kg

DRUGS (2)
  1. SKELAXIN [Suspect]
     Indication: MUSCULOSKELETAL PAIN
     Dosage: 800 MG 1 X DAY MOUTH
     Route: 048
     Dates: start: 20081008
  2. SKELAXIN [Suspect]
     Indication: SCIATICA
     Dosage: 800 MG 1 X DAY MOUTH
     Route: 048
     Dates: start: 20081008

REACTIONS (1)
  - DRUG HYPERSENSITIVITY [None]
